FAERS Safety Report 21153093 (Version 1)
Quarter: 2022Q3

REPORT INFORMATION
  Report Type: Spontaneous
  Country: US (occurrence: US)
  Receive Date: 20220730
  Receipt Date: 20220730
  Transmission Date: 20221026
  Serious: No
  Sender: FDA-Public Use
  Company Number: US-SA-SAC20220727001034

PATIENT
  Age: 55 Year
  Sex: Male

DRUGS (9)
  1. DUPIXENT [Suspect]
     Active Substance: DUPILUMAB
     Indication: Nasal polyps
     Dosage: 300MG, QOW
     Route: 058
     Dates: start: 202204
  2. EZETIMIBE [Concomitant]
     Active Substance: EZETIMIBE
  3. SIMVASTATIN [Concomitant]
     Active Substance: SIMVASTATIN
  4. ASMANEX HFA [Concomitant]
     Active Substance: MOMETASONE FUROATE
  5. ALLEGRA ALLERGY [Concomitant]
     Active Substance: FEXOFENADINE HYDROCHLORIDE
  6. DICLOFENAC SODIUM [Concomitant]
     Active Substance: DICLOFENAC SODIUM
  7. LISINOPRIL [Concomitant]
     Active Substance: LISINOPRIL
  8. MONTELUKAST SODIUM [Concomitant]
     Active Substance: MONTELUKAST SODIUM
  9. VITAMINS NOS [Concomitant]
     Active Substance: VITAMINS

REACTIONS (3)
  - Anosmia [Not Recovered/Not Resolved]
  - Ear discomfort [Not Recovered/Not Resolved]
  - Product use in unapproved indication [Unknown]

NARRATIVE: CASE EVENT DATE: 20220401
